FAERS Safety Report 11771388 (Version 1)
Quarter: 2015Q4

REPORT INFORMATION
  Report Type: Spontaneous
  Country: US (occurrence: US)
  Receive Date: 20151124
  Receipt Date: 20151124
  Transmission Date: 20160304
  Serious: No
  Sender: FDA-Public Use
  Company Number: US-009507513-1511USA004725

PATIENT
  Sex: Female

DRUGS (4)
  1. AMLODIPINE [Concomitant]
     Active Substance: AMLODIPINE BESYLATE
     Dosage: UNK
  2. ASPIRIN. [Concomitant]
     Active Substance: ASPIRIN
     Dosage: 81 MG, QD
     Route: 048
  3. VYTORIN [Suspect]
     Active Substance: EZETIMIBE\SIMVASTATIN
     Indication: ARTERIOSCLEROSIS
     Dosage: ONE 10/20 MG TABLET, QD
     Route: 048
     Dates: start: 20151104
  4. PLAVIX [Concomitant]
     Active Substance: CLOPIDOGREL BISULFATE
     Dosage: UNKNOWN

REACTIONS (7)
  - Arthralgia [Unknown]
  - Decreased appetite [Unknown]
  - Headache [Unknown]
  - Pain in extremity [Unknown]
  - Nausea [Unknown]
  - Fatigue [Unknown]
  - Eructation [Unknown]

NARRATIVE: CASE EVENT DATE: 20151105
